FAERS Safety Report 7628880 (Version 2)
Quarter: 2014Q2

REPORT INFORMATION
  Report Type: Spontaneous
  Country: FR (occurrence: FR)
  Receive Date: 20101014
  Receipt Date: 20140403
  Transmission Date: 20141212
  Serious: Yes (Other)
  Sender: FDA-Public Use
  Company Number: FR-JNJFOC-20101002406

PATIENT
  Age: 20 Year
  Sex: Female

DRUGS (3)
  1. EPITOMAX [Suspect]
     Indication: MIGRAINE WITHOUT AURA
     Route: 048
     Dates: start: 201002, end: 20100428
  2. ZOMIGORO [Concomitant]
     Indication: MIGRAINE WITHOUT AURA
     Route: 048
  3. BI-PROFENID [Concomitant]
     Indication: MIGRAINE WITHOUT AURA
     Route: 048

REACTIONS (3)
  - Depression [Recovered/Resolved]
  - Migraine [Unknown]
  - Drug abuse [Unknown]
